FAERS Safety Report 21887984 (Version 13)
Quarter: 2023Q4

REPORT INFORMATION
  Report Type: Report from Study
  Country: US (occurrence: US)
  Receive Date: 20230120
  Receipt Date: 20231128
  Transmission Date: 20240109
  Serious: No
  Sender: FDA-Public Use
  Company Number: US-002147023-NVSC2023US008645

PATIENT
  Age: 62 Year
  Sex: Female

DRUGS (1)
  1. KESIMPTA [Suspect]
     Active Substance: OFATUMUMAB
     Indication: Product used for unknown indication
     Dosage: UNK
     Route: 065
     Dates: start: 20230112

REACTIONS (11)
  - Feeling cold [Unknown]
  - Hypoaesthesia [Unknown]
  - Gait disturbance [Unknown]
  - Mobility decreased [Unknown]
  - Herpes zoster [Unknown]
  - Fatigue [Unknown]
  - Urinary tract infection [Unknown]
  - Arthralgia [Unknown]
  - Injection site haemorrhage [Unknown]
  - Injection site bruising [Unknown]
  - Injection site pain [Unknown]

NARRATIVE: CASE EVENT DATE: 20230112
